FAERS Safety Report 18227252 (Version 1)
Quarter: 2020Q3

REPORT INFORMATION
  Report Type: Spontaneous
  Country: US (occurrence: US)
  Receive Date: 20200902
  Receipt Date: 20200902
  Transmission Date: 20201103
  Serious: Yes (Other)
  Sender: FDA-Public Use
  Company Number: None

PATIENT
  Age: 60 Year
  Sex: Female

DRUGS (17)
  1. OPSUMIT [Suspect]
     Active Substance: MACITENTAN
     Indication: HEART DISEASE CONGENITAL
     Route: 048
     Dates: start: 201701
  2. OPSUMIT [Suspect]
     Active Substance: MACITENTAN
     Indication: PULMONARY ARTERIAL HYPERTENSION
     Route: 048
     Dates: start: 201701
  3. ADEMPAS [Concomitant]
     Active Substance: RIOCIGUAT
  4. ESTRACE [Concomitant]
     Active Substance: ESTRADIOL
  5. FLUOXETINE [Concomitant]
     Active Substance: FLUOXETINE HYDROCHLORIDE
  6. OXYGEN INTRANASAL [Concomitant]
  7. OPSUMIT [Suspect]
     Active Substance: MACITENTAN
     Indication: CONNECTIVE TISSUE DISORDER
     Route: 048
     Dates: start: 201701
  8. AZELASTINE NASAL SPRAY [Concomitant]
     Active Substance: AZELASTINE
  9. ADDERALL [Concomitant]
     Active Substance: AMPHETAMINE ASPARTATE\AMPHETAMINE SULFATE\DEXTROAMPHETAMINE SACCHARATE\DEXTROAMPHETAMINE SULFATE
  10. EFUDEX CREAM [Concomitant]
  11. TRAZODONE [Concomitant]
     Active Substance: TRAZODONE HYDROCHLORIDE
  12. MVI [Concomitant]
     Active Substance: VITAMINS
  13. UPTRAVI [Concomitant]
     Active Substance: SELEXIPAG
  14. RETIN?A [Concomitant]
     Active Substance: TRETINOIN
  15. NORCO [Concomitant]
     Active Substance: ACETAMINOPHEN\HYDROCODONE BITARTRATE
  16. FAMOTIDINE. [Concomitant]
     Active Substance: FAMOTIDINE
  17. MOTRIN [Concomitant]
     Active Substance: IBUPROFEN

REACTIONS (2)
  - Road traffic accident [None]
  - Contusion [None]

NARRATIVE: CASE EVENT DATE: 20200814
